FAERS Safety Report 5711340-8 (Version None)
Quarter: 2008Q2

REPORT INFORMATION
  Report Type: 
  Country: None (occurrence: None)
  Receive Date: 20080421
  Receipt Date: 20080415
  Transmission Date: 20081010
  Serious: Yes (Death, Hospitalization)
  Sender: FDA-Public Use
  Company Number: A0722892A

PATIENT
  Age: 68 Year
  Sex: Male

DRUGS (1)
  1. ZOFRAN [Suspect]
     Indication: PROPHYLAXIS OF NAUSEA AND VOMITING
     Dosage: 80MG PER DAY
     Route: 048
     Dates: start: 20071201

REACTIONS (1)
  - DEATH [None]
